FAERS Safety Report 19050815 (Version 1)
Quarter: 2021Q1

REPORT INFORMATION
  Report Type: Spontaneous
  Country: US (occurrence: US)
  Receive Date: 20210322
  Receipt Date: 20210322
  Transmission Date: 20210420
  Serious: Yes (Other)
  Sender: FDA-Public Use
  Company Number: None

PATIENT
  Age: 27 Year
  Sex: Female
  Weight: 109.77 kg

DRUGS (5)
  1. REXULTI [Suspect]
     Active Substance: BREXPIPRAZOLE
  2. XANAX [Suspect]
     Active Substance: ALPRAZOLAM
  3. MELOXICAM. [Concomitant]
     Active Substance: MELOXICAM
  4. CELEXA [Suspect]
     Active Substance: CITALOPRAM HYDROBROMIDE
  5. OEPRAZOLE [Concomitant]

REACTIONS (3)
  - Exposure during pregnancy [None]
  - Renal pain [None]
  - Gestational diabetes [None]

NARRATIVE: CASE EVENT DATE: 20190511
